FAERS Safety Report 17605724 (Version 1)
Quarter: 2020Q1

REPORT INFORMATION
  Report Type: Report from Study
  Country: US (occurrence: US)
  Receive Date: 20200331
  Receipt Date: 20200331
  Transmission Date: 20200409
  Serious: Yes (Death, Hospitalization)
  Sender: FDA-Public Use
  Company Number: US-ACTELION-A-NJ2018-166457

PATIENT
  Age: 54 Year
  Sex: Female
  Weight: 43.99 kg

DRUGS (8)
  1. VELETRI [Suspect]
     Active Substance: EPOPROSTENOL
     Dosage: 35 NG/KG, PER MIN
     Route: 042
  2. VELETRI [Suspect]
     Active Substance: EPOPROSTENOL
     Dosage: 45 NG/KG, PER MIN
     Route: 042
  3. LETAIRIS [Concomitant]
     Active Substance: AMBRISENTAN
  4. SILDENAFIL. [Concomitant]
     Active Substance: SILDENAFIL
  5. VELETRI [Suspect]
     Active Substance: EPOPROSTENOL
     Dosage: 56 NG/KG, PER MIN
     Route: 042
  6. ELIQUIS [Concomitant]
     Active Substance: APIXABAN
  7. VELETRI [Suspect]
     Active Substance: EPOPROSTENOL
     Indication: PULMONARY ARTERIAL HYPERTENSION
     Dosage: 62 NG/KG, PER MIN
     Route: 042
  8. VELETRI [Suspect]
     Active Substance: EPOPROSTENOL
     Dosage: 58 NG/KG, PER MIN
     Route: 042

REACTIONS (8)
  - Internal haemorrhage [Unknown]
  - Dyspnoea exertional [Unknown]
  - Death [Fatal]
  - Chest pain [Unknown]
  - Pain in jaw [Unknown]
  - Diarrhoea [Unknown]
  - Dyspnoea [Unknown]
  - Sensitivity to weather change [Unknown]

NARRATIVE: CASE EVENT DATE: 201901
